FAERS Safety Report 18861595 (Version 1)
Quarter: 2021Q1

REPORT INFORMATION
  Report Type: Spontaneous
  Country: CN (occurrence: CN)
  Receive Date: 20210208
  Receipt Date: 20210208
  Transmission Date: 20210420
  Serious: Yes (Life-Threatening)
  Sender: FDA-Public Use
  Company Number: NVSC2021CN026825

PATIENT
  Age: 59 Year
  Sex: Male
  Weight: 80 kg

DRUGS (8)
  1. EXFORGE [Suspect]
     Active Substance: AMLODIPINE BESYLATE\VALSARTAN
     Indication: ARTERIOSCLEROSIS CORONARY ARTERY
     Dosage: 1 DF, BID
     Route: 048
     Dates: start: 20201204, end: 20201216
  2. WARFARIN SODIUM. [Concomitant]
     Active Substance: WARFARIN SODIUM
     Indication: ANTICOAGULANT THERAPY
     Dosage: 0.1 G, BID
     Route: 048
     Dates: start: 20201208, end: 20201216
  3. THEOPHYLLINE [Concomitant]
     Active Substance: THEOPHYLLINE ANHYDROUS
     Indication: INFLAMMATION
     Dosage: 0.1 G, BID, SUSTAINED RELEASE TABLETS
     Route: 048
     Dates: start: 20201206, end: 20201216
  4. EXFORGE [Suspect]
     Active Substance: AMLODIPINE BESYLATE\VALSARTAN
     Indication: CARDIAC FAILURE ACUTE
  5. NARCARICIN MITE [Concomitant]
     Indication: FRACTIONAL URIC ACID EXCRETION
     Dosage: 50 MG, QD
     Route: 048
     Dates: start: 20201204, end: 20201216
  6. THEOPHYLLINE [Concomitant]
     Active Substance: THEOPHYLLINE ANHYDROUS
     Indication: ASTHMA
  7. SPIRONOLACTONE. [Suspect]
     Active Substance: SPIRONOLACTONE
     Indication: POLYURIA
     Dosage: 20 MG, QD
     Route: 048
     Dates: start: 20201204, end: 20201214
  8. PANTOPRAZOLE SODIUM. [Concomitant]
     Active Substance: PANTOPRAZOLE SODIUM
     Indication: GASTRIC DISORDER
     Dosage: 20 MG, QD, ENTERIC COATED TABLET
     Route: 048
     Dates: start: 20201204, end: 20201216

REACTIONS (1)
  - Hyperkalaemia [Recovering/Resolving]

NARRATIVE: CASE EVENT DATE: 20201214
